FAERS Safety Report 19214106 (Version 2)
Quarter: 2021Q2

REPORT INFORMATION
  Report Type: Spontaneous
  Country: GB (occurrence: GB)
  Receive Date: 20210505
  Receipt Date: 20210531
  Transmission Date: 20210717
  Serious: Yes (Other)
  Sender: FDA-Public Use
  Company Number: GB-JNJFOC-20210452394

PATIENT
  Age: 51 Year
  Sex: Female

DRUGS (6)
  1. IBUPROFEN. [Suspect]
     Active Substance: IBUPROFEN
     Indication: PRODUCT USED FOR UNKNOWN INDICATION
     Route: 065
  2. OESTROGEL [Concomitant]
     Active Substance: ESTRADIOL
     Indication: MENOPAUSE
     Route: 065
     Dates: start: 20201101
  3. UTROGESTAN [Concomitant]
     Active Substance: PROGESTERONE
     Indication: MENOPAUSE
     Route: 065
     Dates: start: 20201101
  4. LORATADINE. [Concomitant]
     Active Substance: LORATADINE
     Indication: HYPERSENSITIVITY
     Route: 065
     Dates: start: 20210310
  5. PARACETAMOL [Concomitant]
     Active Substance: ACETAMINOPHEN
     Indication: HEADACHE
     Route: 065
  6. COVID?19 VACCINE NOS. [Suspect]
     Active Substance: COVID-19 VACCINE NOS
     Indication: IMMUNISATION
     Dosage: DOSE 2
     Route: 065
     Dates: start: 20210420

REACTIONS (5)
  - Lymphadenopathy [Not Recovered/Not Resolved]
  - Pain [Unknown]
  - Swelling face [Not Recovered/Not Resolved]
  - Fatigue [Unknown]
  - Headache [Recovering/Resolving]

NARRATIVE: CASE EVENT DATE: 20210421
